FAERS Safety Report 7405419-2 (Version None)
Quarter: 2011Q2

REPORT INFORMATION
  Report Type: 
  Country: None (occurrence: None)
  Receive Date: 20110401
  Receipt Date: 20110325
  Transmission Date: 20111010
  Serious: Yes (Death, Hospitalization)
  Sender: FDA-Public Use
  Company Number: 2010AC000270

PATIENT
  Age: 82 Year
  Sex: Male

DRUGS (29)
  1. ASPIRIN [Concomitant]
  2. ENALAPRIL [Concomitant]
  3. COLACE [Concomitant]
  4. SYNTHROID [Concomitant]
  5. TOPROL-XL [Concomitant]
  6. WARFARIN [Concomitant]
  7. LEVAQUIN [Concomitant]
  8. DUONEB [Concomitant]
  9. FLOMAX [Concomitant]
  10. ALTACE [Concomitant]
  11. SPIRONOLACTONE [Concomitant]
  12. ZOCOR [Concomitant]
  13. DIGOXIN [Suspect]
     Indication: ATRIAL FIBRILLATION
     Dosage: 0.25 MG;QD;PO
     Route: 048
     Dates: start: 20010101, end: 20080501
  14. LIPITOR [Concomitant]
  15. FUROSEMIDE [Concomitant]
  16. FLAGYL [Concomitant]
  17. MILIRONE [Concomitant]
  18. SODIUM BICARBONATE [Concomitant]
  19. VIGRA [Concomitant]
  20. BUMEX [Concomitant]
  21. ALDACTONE [Concomitant]
  22. DOBUTAMINE HCL [Concomitant]
  23. DIGOXIN [Suspect]
     Indication: PRODUCT USED FOR UNKNOWN INDICATION
     Dosage: 0.125 MG;QD;PO
     Route: 048
     Dates: start: 20080322
  24. COREG [Concomitant]
  25. ALLOPURINOL [Concomitant]
  26. LUNESTA [Concomitant]
  27. SUCRALFATE [Concomitant]
  28. IMDUR [Concomitant]
  29. FERROUS SULFATE TAB [Concomitant]

REACTIONS (49)
  - BLOOD UREA INCREASED [None]
  - TOXICITY TO VARIOUS AGENTS [None]
  - OCCULT BLOOD POSITIVE [None]
  - HYPERTENSION [None]
  - VENTRICULAR TACHYCARDIA [None]
  - LOW CARDIAC OUTPUT SYNDROME [None]
  - COUGH [None]
  - INJURY [None]
  - BLOOD CREATININE INCREASED [None]
  - BLOOD BILIRUBIN INCREASED [None]
  - PULMONARY CONGESTION [None]
  - DYSPNOEA [None]
  - VISION BLURRED [None]
  - OXYGEN SATURATION DECREASED [None]
  - PLEURAL EFFUSION [None]
  - AMNESIA [None]
  - MEMORY IMPAIRMENT [None]
  - OEDEMA PERIPHERAL [None]
  - DIZZINESS [None]
  - ASTHENIA [None]
  - GLOMERULAR FILTRATION RATE DECREASED [None]
  - VENTRICULAR DYSFUNCTION [None]
  - PULMONARY OEDEMA [None]
  - FALL [None]
  - ATRIOVENTRICULAR BLOCK FIRST DEGREE [None]
  - BUNDLE BRANCH BLOCK LEFT [None]
  - HEART RATE DECREASED [None]
  - CLOSTRIDIUM TEST POSITIVE [None]
  - ATELECTASIS [None]
  - ISCHAEMIC CARDIOMYOPATHY [None]
  - WEIGHT INCREASED [None]
  - WHITE BLOOD CELL COUNT INCREASED [None]
  - ASCITES [None]
  - DEPRESSED LEVEL OF CONSCIOUSNESS [None]
  - HYPOXIA [None]
  - SYNCOPE [None]
  - CHEYNE-STOKES RESPIRATION [None]
  - INTERNATIONAL NORMALISED RATIO INCREASED [None]
  - NERVOUS SYSTEM DISORDER [None]
  - CONFUSIONAL STATE [None]
  - CARDIOMEGALY [None]
  - DISORIENTATION [None]
  - FATIGUE [None]
  - DECUBITUS ULCER [None]
  - TACHYPNOEA [None]
  - SCROTAL OEDEMA [None]
  - LETHARGY [None]
  - HYPOKALAEMIA [None]
  - CORONARY ARTERY DISEASE [None]
